FAERS Safety Report 4686099-6 (Version None)
Quarter: 2005Q2

REPORT INFORMATION
  Report Type: 
  Country: None (occurrence: None)
  Receive Date: 20050603
  Receipt Date: 20050525
  Transmission Date: 20051028
  Serious: Yes (Other)
  Sender: FDA-Public Use
  Company Number: DEWYE693125MAY05

PATIENT

DRUGS (1)
  1. LEIOS (LEVONORGESTREL/ ETHINYL ESTRADIOL, TABLET, 0) [Suspect]
     Indication: CONTRACEPTION
     Dosage: 1 TABLET TRANSPLACENTAL
     Route: 064
     Dates: end: 20040101

REACTIONS (1)
  - HEART DISEASE CONGENITAL [None]
